FAERS Safety Report 11043864 (Version 5)
Quarter: 2015Q4

REPORT INFORMATION
  Report Type: Spontaneous
  Country: TR (occurrence: TR)
  Receive Date: 20150417
  Receipt Date: 20151029
  Transmission Date: 20160304
  Serious: Yes (Hospitalization, Other)
  Sender: FDA-Public Use
  Company Number: TR-JNJFOC-20150412401

PATIENT
  Age: 28 Year
  Sex: Male

DRUGS (22)
  1. ACETYLCYSTEIN [Concomitant]
     Active Substance: ACETYLCYSTEINE
     Route: 065
     Dates: start: 20130307, end: 20130309
  2. NOVALGIN [Concomitant]
     Active Substance: METAMIZOLE SODIUM
     Route: 065
     Dates: start: 20120210, end: 20120217
  3. PIROPHEN [Concomitant]
     Route: 065
     Dates: start: 20120211, end: 20120211
  4. NEOSTIGMINE [Concomitant]
     Active Substance: NEOSTIGMINE
     Route: 065
     Dates: start: 20130308, end: 20130308
  5. PROPOFOL. [Concomitant]
     Active Substance: PROPOFOL
     Route: 065
     Dates: start: 20130308, end: 20130308
  6. TENOXICAM [Concomitant]
     Active Substance: TENOXICAM
     Route: 065
     Dates: start: 20130308, end: 20130308
  7. ALDOLAN [Concomitant]
     Route: 065
     Dates: start: 20130308, end: 20130308
  8. CEFPROZIL. [Concomitant]
     Active Substance: CEFPROZIL
     Route: 065
     Dates: start: 20130310, end: 20130312
  9. TRAMADOL HYDROCHLORIDE. [Suspect]
     Active Substance: TRAMADOL HYDROCHLORIDE
     Indication: PAIN
     Route: 065
     Dates: start: 20130307, end: 20130312
  10. VENTOLINE [Concomitant]
     Active Substance: ALBUTEROL
     Route: 055
     Dates: start: 20120210, end: 20120217
  11. DICLOFENAC [Concomitant]
     Active Substance: DICLOFENAC
     Route: 065
     Dates: start: 20130307, end: 20130309
  12. ALL OTHER THERAPEUTIC PRODUCTS [Concomitant]
     Active Substance: UNSPECIFIED INGREDIENT
     Route: 065
     Dates: start: 20130308, end: 20130308
  13. OMEPRAZOLE. [Concomitant]
     Active Substance: OMEPRAZOLE
     Route: 065
     Dates: start: 20130310, end: 20130312
  14. CEFAZOLINE [Concomitant]
     Active Substance: CEFAZOLIN SODIUM
     Route: 065
     Dates: start: 20130307, end: 20130310
  15. DECORT [Concomitant]
     Route: 065
     Dates: start: 20130308, end: 20130308
  16. MARCAINA [Concomitant]
     Active Substance: BUPIVACAINE HYDROCHLORIDE
     Route: 065
     Dates: start: 20130308, end: 20130308
  17. MORPHINE [Concomitant]
     Active Substance: MORPHINE
     Route: 065
     Dates: start: 20130308, end: 20130308
  18. TRAMADOL HYDROCHLORIDE. [Suspect]
     Active Substance: TRAMADOL HYDROCHLORIDE
     Indication: PAIN
     Route: 065
     Dates: start: 20120210, end: 20120217
  19. LACTULOSE. [Concomitant]
     Active Substance: LACTULOSE
     Route: 065
     Dates: start: 20120212, end: 20120212
  20. ESMERON [Concomitant]
     Active Substance: ROCURONIUM BROMIDE
     Route: 065
     Dates: start: 20130308, end: 20130308
  21. ATROPINE. [Concomitant]
     Active Substance: ATROPINE
     Route: 065
     Dates: start: 20130308, end: 20130308
  22. RANITIDINE [Concomitant]
     Active Substance: RANITIDINE\RANITIDINE HYDROCHLORIDE
     Route: 065
     Dates: start: 20130308, end: 20130309

REACTIONS (4)
  - Mania [Recovered/Resolved]
  - Mania [Recovered/Resolved]
  - Waxy flexibility [Recovered/Resolved]
  - Hostility [Recovered/Resolved]

NARRATIVE: CASE EVENT DATE: 201202
